FAERS Safety Report 7371643-0 (Version None)
Quarter: 2011Q1

REPORT INFORMATION
  Report Type: 
  Country: None (occurrence: None)
  Receive Date: 20110324
  Receipt Date: 20110318
  Transmission Date: 20110831
  Serious: Yes (Other)
  Sender: FDA-Public Use
  Company Number: FR-PFIZER INC-2011059903

PATIENT
  Age: 33 Year
  Sex: Male

DRUGS (6)
  1. EFFEXOR XR [Suspect]
     Dosage: 37.5 MG, 1X/DAY
     Dates: start: 20110101
  2. EFFEXOR XR [Suspect]
     Dosage: 75 MG+37.5 MG PER DAY
     Dates: start: 20100801
  3. EFFEXOR XR [Suspect]
     Dosage: 75 MG, 1X/DAY
  4. EFFEXOR XR [Suspect]
     Dosage: 75 MG, 2X/DAY
     Dates: start: 20081201
  5. STILNOX [Concomitant]
  6. LYSANXIA [Concomitant]

REACTIONS (2)
  - DEAFNESS NEUROSENSORY [None]
  - EPISTAXIS [None]
